FAERS Safety Report 14263815 (Version 1)
Quarter: 2017Q4

REPORT INFORMATION
  Report Type: Spontaneous
  Country: US (occurrence: US)
  Receive Date: 20171208
  Receipt Date: 20171208
  Transmission Date: 20180321
  Serious: Yes (Hospitalization, Other)
  Sender: FDA-Public Use
  Company Number: US-BEH-2017085596

PATIENT
  Age: 58 Year
  Sex: Female
  Weight: 53.61 kg

DRUGS (30)
  1. NICOTINE STEP 2 [Concomitant]
     Route: 062
  2. VITAMIN B6 [Concomitant]
     Active Substance: PYRIDOXINE HYDROCHLORIDE
  3. CALCIUM [Concomitant]
     Active Substance: CALCIUM
  4. PROAIR HFA [Concomitant]
     Active Substance: ALBUTEROL SULFATE
  5. OXYCODONE [Concomitant]
     Active Substance: OXYCODONE
  6. AZELASTINE. [Concomitant]
     Active Substance: AZELASTINE HYDROCHLORIDE
  7. MOXIFLOXACIN. [Concomitant]
     Active Substance: MOXIFLOXACIN
  8. MULTIVITAMINS [Concomitant]
     Active Substance: VITAMINS
  9. LAXATIVE [Concomitant]
     Active Substance: UNSPECIFIED INGREDIENT
  10. ATORVASTATIN [Concomitant]
     Active Substance: ATORVASTATIN
  11. AMLODIPINE [Concomitant]
     Active Substance: AMLODIPINE BESYLATE
  12. PROPANOLOL                         /00030001/ [Concomitant]
     Active Substance: PROPRANOLOL HYDROCHLORIDE
  13. DICLOFENAC [Concomitant]
     Active Substance: DICLOFENAC
  14. ASPIRIN. [Concomitant]
     Active Substance: ASPIRIN
  15. ACETAMINOPHEN. [Concomitant]
     Active Substance: ACETAMINOPHEN
  16. PROZAC [Concomitant]
     Active Substance: FLUOXETINE HYDROCHLORIDE
  17. HIZENTRA [Suspect]
     Active Substance: HUMAN IMMUNOGLOBULIN G
     Dosage: UNK
     Route: 058
  18. GABAPENTIN. [Concomitant]
     Active Substance: GABAPENTIN
  19. TIZANIDINE. [Concomitant]
     Active Substance: TIZANIDINE
  20. CITALOPRAM [Concomitant]
     Active Substance: CITALOPRAM HYDROBROMIDE
  21. FLUTICASONE. [Concomitant]
     Active Substance: FLUTICASONE
  22. BACLOFEN. [Concomitant]
     Active Substance: BACLOFEN
  23. VITAMIN D3 [Concomitant]
     Active Substance: CHOLECALCIFEROL
  24. HIZENTRA [Suspect]
     Active Substance: HUMAN IMMUNOGLOBULIN G
     Indication: IMMUNODEFICIENCY COMMON VARIABLE
     Dosage: 10 G, UNK
     Route: 058
     Dates: start: 20160615
  25. RAMIPRIL. [Concomitant]
     Active Substance: RAMIPRIL
  26. BUSPIRONE [Concomitant]
     Active Substance: BUSPIRONE HYDROCHLORIDE
  27. MINOCYCLINE [Concomitant]
     Active Substance: MINOCYCLINE\MINOCYCLINE HYDROCHLORIDE
  28. FOSAMAX [Concomitant]
     Active Substance: ALENDRONATE SODIUM
  29. SAVELLA [Concomitant]
     Active Substance: MILNACIPRAN HYDROCHLORIDE
  30. DICLOFENAC [Concomitant]
     Active Substance: DICLOFENAC

REACTIONS (3)
  - Cerebrovascular accident [Unknown]
  - Sinusitis [Unknown]
  - Localised infection [Unknown]

NARRATIVE: CASE EVENT DATE: 20170822
